FAERS Safety Report 5682439-X (Version None)
Quarter: 2008Q1

REPORT INFORMATION
  Report Type: 
  Country: None (occurrence: None)
  Receive Date: 20080326
  Receipt Date: 20080326
  Transmission Date: 20080703
  Serious: Yes (Hospitalization)
  Sender: FDA-Public Use
  Company Number: None

PATIENT
  Sex: Female
  Weight: 103.7 kg

DRUGS (1)
  1. TAXOL [Suspect]
     Dosage: 350 MG
     Dates: start: 20080317

REACTIONS (2)
  - DIARRHOEA [None]
  - VOMITING [None]
